FAERS Safety Report 9981120 (Version 3)
Quarter: 2014Q2

REPORT INFORMATION
  Report Type: Spontaneous
  Country: IT (occurrence: None)
  Receive Date: 20140305
  Receipt Date: 20140506
  Transmission Date: 20141212
  Serious: Yes (Hospitalization)
  Sender: FDA-Public Use
  Company Number: AUR-APL-2014-02258

PATIENT
  Age: 85 Year
  Sex: Male

DRUGS (10)
  1. CARVEDILOL (CARVEDILOL) [Suspect]
     Indication: PRODUCT USED FOR UNKNOWN INDICATION
     Dosage: (12.5 MG,1 D)
     Dates: start: 20130601, end: 20131225
  2. AVODART [Concomitant]
  3. PORTOLAC [Concomitant]
  4. METFORMIN HYDROCHLORIDE [Concomitant]
  5. ATORVASTATIN [Concomitant]
  6. CARDIRENE (ACETYLSALICYLATE LYSINE) [Concomitant]
  7. PANTECTA (PANTOPRAZOLE SODIUM SESQUIHYDRATE) [Concomitant]
  8. MONOKET [Concomitant]
  9. TRIATEC [Suspect]
     Indication: PRODUCT USED FOR UNKNOWN INDICATION
     Dosage: (5 MG,1 D)
     Dates: start: 20130101, end: 20131225
  10. TRIATEC HCT [Suspect]
     Indication: PRODUCT USED FOR UNKNOWN INDICATION
     Dosage: (5 MG,1 D)
     Dates: start: 20130101, end: 20131225

REACTIONS (2)
  - Presyncope [None]
  - Syncope [None]
